FAERS Safety Report 4587218-2 (Version None)
Quarter: 2005Q1

REPORT INFORMATION
  Report Type: 
  Country: None (occurrence: None)
  Receive Date: 20050218
  Receipt Date: 20050216
  Transmission Date: 20050727
  Serious: Yes (Other)
  Sender: FDA-Public Use
  Company Number: US-GLAXOSMITHKLINE-A0545786A

PATIENT
  Sex: Male

DRUGS (1)
  1. AVODART [Suspect]
     Indication: ILL-DEFINED DISORDER
     Route: 048

REACTIONS (3)
  - FEELING ABNORMAL [None]
  - JAUNDICE [None]
  - PAIN [None]
